FAERS Safety Report 5162660-X (Version None)
Quarter: 2006Q4

REPORT INFORMATION
  Report Type: 
  Country: None (occurrence: None)
  Receive Date: 20061201
  Receipt Date: 20061106
  Transmission Date: 20070319
  Serious: Yes (Hospitalization)
  Sender: FDA-Public Use
  Company Number: US-AMGEN-STX199370

PATIENT
  Sex: Female
  Weight: 84 kg

DRUGS (8)
  1. ENBREL [Suspect]
     Indication: RHEUMATOID ARTHRITIS
     Route: 058
     Dates: start: 20010701
  2. ENBREL [Suspect]
     Dates: start: 20061030
  3. METHOTREXATE [Concomitant]
     Indication: RHEUMATOID ARTHRITIS
     Dates: start: 20000101
  4. IBUPROFEN [Concomitant]
  5. IBUPROFEN [Concomitant]
  6. ASPIRIN [Concomitant]
  7. COUMADIN [Concomitant]
  8. FOLIC ACID [Concomitant]

REACTIONS (6)
  - COMPARTMENT SYNDROME [None]
  - CONDITION AGGRAVATED [None]
  - INJECTION SITE PAIN [None]
  - JOINT EFFUSION [None]
  - RHEUMATOID ARTHRITIS [None]
  - SYNOVITIS [None]
